FAERS Safety Report 12561064 (Version 2)
Quarter: 2016Q3

REPORT INFORMATION
  Report Type: Spontaneous
  Country: BE (occurrence: BE)
  Receive Date: 20160715
  Receipt Date: 20160801
  Transmission Date: 20161109
  Serious: Yes (Other)
  Sender: FDA-Public Use
  Company Number: BE-MYLANLABS-2016M1029322

PATIENT

DRUGS (12)
  1. FLUOROURACIL. [Suspect]
     Active Substance: FLUOROURACIL
     Dosage: 1000 MG/M2 ON DAYS 1-4
     Dates: start: 20050509
  2. CETUXIMAB [Suspect]
     Active Substance: CETUXIMAB
     Dosage: 250 MG/M2 WEEKLY (MAINTENANCE DOES)
     Dates: start: 20050913
  3. CISPLATIN. [Suspect]
     Active Substance: CISPLATIN
     Indication: OROPHARYNGEAL CANCER RECURRENT
     Dosage: 75 MG/M2 ON DAY 1
     Route: 065
     Dates: start: 20060614, end: 20060916
  4. CISPLATIN. [Suspect]
     Active Substance: CISPLATIN
     Dosage: 100 MG/M2 ON DAY 1
     Route: 065
     Dates: start: 20050509
  5. CETUXIMAB [Suspect]
     Active Substance: CETUXIMAB
     Indication: OROPHARYNGEAL CANCER RECURRENT
     Dosage: 250 MG/M2 ON DAYS 1,8 AND 15
     Route: 065
     Dates: start: 20060614, end: 20060916
  6. FLUOROURACIL. [Suspect]
     Active Substance: FLUOROURACIL
     Indication: OROPHARYNGEAL CANCER RECURRENT
     Dosage: 750 MG/M2 ON DAYS 1-5
     Route: 065
     Dates: start: 20060614, end: 20060916
  7. CETUXIMAB [Suspect]
     Active Substance: CETUXIMAB
     Dosage: 400 MG/M2 ON DAY 1 (LOADING DOSE)
     Route: 065
     Dates: start: 20060614
  8. DEXAMETHASONE. [Concomitant]
     Active Substance: DEXAMETHASONE
     Indication: PRODUCT USED FOR UNKNOWN INDICATION
     Dosage: 8MG TWICE A DAY FOR 3 DAYS
     Route: 048
  9. DOCETAXEL. [Suspect]
     Active Substance: DOCETAXEL
     Indication: OROPHARYNGEAL CANCER RECURRENT
     Dosage: 75 MG/M2 ON DAY 1
     Route: 065
     Dates: start: 20060614, end: 20060916
  10. CETUXIMAB [Suspect]
     Active Substance: CETUXIMAB
     Dosage: 400 MG/M2 ON DAY 1 (LOADING DOSE)
     Route: 065
     Dates: start: 20050509
  11. CETUXIMAB [Suspect]
     Active Substance: CETUXIMAB
     Dosage: 250 MG/M2 WEEKLY (MAINTENANCE DOSE)
     Dates: start: 20050509
  12. CIPROFLOXACIN. [Concomitant]
     Active Substance: CIPROFLOXACIN
     Indication: ANTIBIOTIC PROPHYLAXIS
     Dosage: 500MG EVERY 12 HOURS ON DAYS 5-15
     Route: 065

REACTIONS (19)
  - Weight decreased [Unknown]
  - Stomatitis [Recovering/Resolving]
  - Punctate keratitis [Unknown]
  - Decreased appetite [Unknown]
  - Febrile neutropenia [Unknown]
  - Peripheral sensory neuropathy [Not Recovered/Not Resolved]
  - Performance status decreased [Unknown]
  - Constipation [Recovering/Resolving]
  - Dizziness [Unknown]
  - Neutropenia [Unknown]
  - Nausea [Unknown]
  - Alopecia [Unknown]
  - Infection [Unknown]
  - Fatigue [Unknown]
  - Deafness [Not Recovered/Not Resolved]
  - Hypotension [Unknown]
  - Rash [Unknown]
  - Nail disorder [Recovering/Resolving]
  - Diarrhoea [Unknown]
